FAERS Safety Report 4477226-4 (Version None)
Quarter: 2004Q4

REPORT INFORMATION
  Report Type: 
  Country: None (occurrence: None)
  Receive Date: 20041013
  Receipt Date: 20040930
  Transmission Date: 20050328
  Serious: Yes (Death)
  Sender: FDA-Public Use
  Company Number: A01200404816

PATIENT
  Age: 81 Year
  Sex: Male

DRUGS (8)
  1. CLOPIDOGREL BISULFATE [Suspect]
     Dosage: 75 MG QD, ORAL
     Route: 048
     Dates: end: 20020623
  2. VALPROATE SODIUM [Suspect]
     Dosage: 400 MG QD, ORAL
     Route: 048
     Dates: start: 20020622, end: 20020626
  3. AUGMENTIN DUO FORTE - (AMOXICILLIN/CLAVULANIC ACID) - TABLET [Suspect]
     Dosage: 2 UNIT QD, ORAL
     Route: 048
     Dates: start: 20020621, end: 20020623
  4. IRBESARTAN [Suspect]
     Dosage: 150 MG QD, ORAL
     Route: 048
     Dates: end: 20020623
  5. (QUETIAPINE) - TABLET [Suspect]
     Dosage: 50 MG QD, ORAL
     Route: 048
     Dates: start: 20020617, end: 20020623
  6. (CALCITONIN, SALMON) - SOLUTION [Suspect]
     Dosage: 100 IU QD, SUBCUTANEOUS
     Route: 058
     Dates: start: 20020623, end: 20020628
  7. CALTRATE (CALCIUM CARBONATE) [Concomitant]
  8. OSTELIN (ERGOCALCIFEROL) [Concomitant]

REACTIONS (2)
  - DERMATITIS BULLOUS [None]
  - HEPATIC FAILURE [None]
